FAERS Safety Report 6811604-0 (Version None)
Quarter: 2010Q3

REPORT INFORMATION
  Report Type: 
  Country: None (occurrence: None)
  Receive Date: 20100701
  Receipt Date: 20100622
  Transmission Date: 20110219
  Serious: Yes (Hospitalization)
  Sender: FDA-Public Use
  Company Number: US-BIOGENIDEC-2010BI021458

PATIENT
  Sex: Female

DRUGS (1)
  1. AVONEX [Suspect]
     Indication: MULTIPLE SCLEROSIS
     Route: 030
     Dates: start: 19970101

REACTIONS (5)
  - CORNEAL DEGENERATION [None]
  - DEHYDRATION [None]
  - GALLBLADDER PAIN [None]
  - MYOCARDIAL INFARCTION [None]
  - OVERDOSE [None]
